FAERS Safety Report 20903928 (Version 2)
Quarter: 2022Q2

REPORT INFORMATION
  Report Type: Spontaneous
  Country: US (occurrence: US)
  Receive Date: 20220602
  Receipt Date: 20220616
  Transmission Date: 20220720
  Serious: Yes (Hospitalization)
  Sender: FDA-Public Use
  Company Number: US-TEVA-2022-US-2041265

PATIENT
  Age: 56 Year
  Sex: Male

DRUGS (15)
  1. PREDNISONE [Suspect]
     Active Substance: PREDNISONE
     Indication: Seronegative arthritis
     Dosage: UPTO 40MG/DAY
     Route: 065
  2. PREDNISONE [Suspect]
     Active Substance: PREDNISONE
     Dosage: 10 MILLIGRAM DAILY;
     Route: 048
  3. AZITHROMYCIN [Suspect]
     Active Substance: AZITHROMYCIN
     Indication: Mycobacterium chelonae infection
     Route: 048
     Dates: start: 20200123
  4. TOBRAMYCIN [Suspect]
     Active Substance: TOBRAMYCIN
     Indication: Mycobacterium chelonae infection
     Route: 042
     Dates: start: 20200123
  5. SULFAMETHOXAZOLE\TRIMETHOPRIM [Suspect]
     Active Substance: SULFAMETHOXAZOLE\TRIMETHOPRIM
     Indication: Mycobacterium chelonae infection
     Route: 048
     Dates: start: 20200123
  6. TEDIZOLID [Suspect]
     Active Substance: TEDIZOLID
     Indication: Mycobacterium chelonae infection
     Route: 065
  7. OMADACYCLINE [Suspect]
     Active Substance: OMADACYCLINE
     Indication: Mycobacterium chelonae infection
     Route: 065
  8. CLOFAZIMINE [Suspect]
     Active Substance: CLOFAZIMINE
     Indication: Mycobacterium chelonae infection
     Route: 065
  9. BEDAQUILINE [Suspect]
     Active Substance: BEDAQUILINE
     Indication: Mycobacterium chelonae infection
     Route: 065
  10. IMIPENEM [Suspect]
     Active Substance: IMIPENEM
     Indication: Mycobacterium chelonae infection
     Route: 065
  11. MEROPENEM\VABORBACTAM [Suspect]
     Active Substance: MEROPENEM\VABORBACTAM
     Indication: Mycobacterium chelonae infection
     Route: 065
  12. METHOTREXATE [Concomitant]
     Active Substance: METHOTREXATE
     Indication: Seronegative arthritis
     Route: 065
     Dates: start: 201911
  13. ETANERCEPT [Concomitant]
     Active Substance: ETANERCEPT
     Indication: Seronegative arthritis
     Route: 065
     Dates: start: 201911
  14. ADALIMUMAB [Concomitant]
     Active Substance: ADALIMUMAB
     Indication: Seronegative arthritis
     Route: 065
     Dates: start: 201911
  15. TOFACITINIB [Concomitant]
     Active Substance: TOFACITINIB
     Indication: Seronegative arthritis
     Route: 065
     Dates: start: 201911

REACTIONS (9)
  - Mycobacterium chelonae infection [Recovering/Resolving]
  - Immune reconstitution inflammatory syndrome [Recovering/Resolving]
  - Renal injury [Recovering/Resolving]
  - Ototoxicity [Recovering/Resolving]
  - Gastrointestinal disorder [Recovered/Resolved]
  - Drug resistance [Unknown]
  - Hypogammaglobulinaemia [Unknown]
  - Arthritis bacterial [Unknown]
  - Drug ineffective [Unknown]
